FAERS Safety Report 8122196-0 (Version None)
Quarter: 2012Q1

REPORT INFORMATION
  Report Type: 
  Country: None (occurrence: None)
  Receive Date: 20120208
  Receipt Date: 20120127
  Transmission Date: 20120608
  Serious: Yes (Hospitalization)
  Sender: FDA-Public Use
  Company Number: US-BAYER-2011-076570

PATIENT
  Age: 29 Year
  Sex: Female
  Weight: 58.503 kg

DRUGS (7)
  1. YASMIN [Suspect]
     Indication: PREMENSTRUAL SYNDROME
     Dosage: UNK
     Route: 048
     Dates: start: 20041022, end: 20091001
  2. BENTYL [Concomitant]
     Indication: IRRITABLE BOWEL SYNDROME
     Dosage: UNK
     Dates: start: 20050101
  3. ZOLOFT [Concomitant]
     Indication: ANXIETY
     Dosage: UNK
     Dates: start: 20020101, end: 20030101
  4. CALCIUM [Concomitant]
  5. CRANBERRY PILLS [Concomitant]
  6. MUCINEX [Concomitant]
     Indication: LUNG DISORDER
     Dosage: UNK
     Dates: start: 20091210, end: 20091215
  7. YAZ [Suspect]
     Indication: PREMENSTRUAL SYNDROME
     Dosage: UNK
     Route: 048
     Dates: start: 20041022, end: 20091001

REACTIONS (8)
  - EMOTIONAL DISTRESS [None]
  - INFERTILITY [None]
  - ANXIETY [None]
  - DEEP VEIN THROMBOSIS [None]
  - ANHEDONIA [None]
  - PAIN [None]
  - MENTAL DISORDER [None]
  - INJURY [None]
